FAERS Safety Report 7233395-4 (Version None)
Quarter: 2011Q1

REPORT INFORMATION
  Report Type: 
  Country: None (occurrence: None)
  Receive Date: 20110119
  Receipt Date: 20110105
  Transmission Date: 20110831
  Serious: Yes (Other)
  Sender: FDA-Public Use
  Company Number: US-AMGEN-USASP2010005491

PATIENT

DRUGS (1)
  1. ENBREL [Suspect]
     Indication: PSORIASIS
     Dosage: 50 MG, 2 TIMES/WK
     Dates: start: 20101109, end: 20101112

REACTIONS (10)
  - FATIGUE [None]
  - CHEST PAIN [None]
  - MOOD ALTERED [None]
  - VISION BLURRED [None]
  - DRUG HYPERSENSITIVITY [None]
  - RASH ERYTHEMATOUS [None]
  - DISORIENTATION [None]
  - TREMOR [None]
  - MEMORY IMPAIRMENT [None]
  - DYSPNOEA [None]
